FAERS Safety Report 7937668-9 (Version None)
Quarter: 2011Q4

REPORT INFORMATION
  Report Type: 
  Country: None (occurrence: None)
  Receive Date: 20111123
  Receipt Date: 20111115
  Transmission Date: 20120403
  Serious: Yes (Hospitalization)
  Sender: FDA-Public Use
  Company Number: PHEH2011US009475

PATIENT
  Age: 54 Year
  Sex: Female
  Weight: 62.7 kg

DRUGS (2)
  1. INTERFERON BETA NOS [Concomitant]
     Indication: MULTIPLE SCLEROSIS
  2. GILENYA [Suspect]
     Indication: MULTIPLE SCLEROSIS
     Dosage: 0.5 MG, DAILY
     Route: 048
     Dates: start: 20110715, end: 20111028

REACTIONS (8)
  - PHARYNGITIS [None]
  - MENINGITIS [None]
  - CSF POLYMORPHONUCLEAR CELL COUNT INCREASED [None]
  - MALAISE [None]
  - AMNESTIC DISORDER [None]
  - CSF PROTEIN INCREASED [None]
  - CONFUSIONAL STATE [None]
  - OROPHARYNGEAL PAIN [None]
